FAERS Safety Report 5127459-9 (Version None)
Quarter: 2006Q4

REPORT INFORMATION
  Report Type: 
  Country: None (occurrence: None)
  Receive Date: 20061010
  Receipt Date: 20060926
  Transmission Date: 20070319
  Serious: Yes (Death)
  Sender: FDA-Public Use
  Company Number: 2006101760

PATIENT
  Age: 68 Year
  Sex: Male
  Weight: 90 kg

DRUGS (14)
  1. VFEND [Suspect]
     Dosage: 200 MG, (EVERY DAY), ORAL
     Route: 048
     Dates: start: 20060721, end: 20060801
  2. ERLOTINIB (ERLOTINIB) [Suspect]
     Dosage: 150 MG (EVERY DAY); ORAL
     Route: 048
     Dates: start: 20060729, end: 20060730
  3. ACARBOSE [Concomitant]
  4. POTASSIUM CHLORIDE [Concomitant]
  5. RAMIPRIL [Concomitant]
  6. PRAVASTATIN [Concomitant]
  7. VERAPAMIL HYDROCHLORIDE [Concomitant]
  8. SPIRONOLACTONE [Concomitant]
  9. FUROSEMIDE [Concomitant]
  10. ALLOPURINOL [Concomitant]
  11. NICORANDIL [Concomitant]
  12. NITROGLYCERIN [Concomitant]
  13. TERBUTALINE SULFATE [Concomitant]
  14. IPRATROPIUM BROMIDE [Concomitant]

REACTIONS (3)
  - ARRHYTHMIA [None]
  - DIARRHOEA [None]
  - DRUG INTERACTION POTENTIATION [None]
